FAERS Safety Report 6254894-8 (Version None)
Quarter: 2009Q3

REPORT INFORMATION
  Report Type: 
  Country: None (occurrence: None)
  Receive Date: 20090702
  Receipt Date: 20090625
  Transmission Date: 20100115
  Serious: Yes (Hospitalization)
  Sender: FDA-Public Use
  Company Number: FR-AVENTIS-200912390FR

PATIENT
  Age: 91 Year
  Sex: Female

DRUGS (12)
  1. LASILIX FAIBLE [Suspect]
     Route: 048
     Dates: end: 20090202
  2. COTAREG [Suspect]
     Route: 048
     Dates: end: 20090202
  3. ALDACTONE [Suspect]
     Route: 048
     Dates: end: 20090202
  4. DISCOTRINE [Concomitant]
     Indication: PROPHYLAXIS
     Route: 062
     Dates: end: 20090202
  5. CORDARONE [Concomitant]
     Route: 048
     Dates: end: 20090202
  6. ADANCOR [Concomitant]
     Indication: PROPHYLAXIS
     Route: 048
     Dates: end: 20090202
  7. HEMIGOXINE NATIVELLE [Concomitant]
     Route: 048
     Dates: end: 20090202
  8. COUMADIN [Concomitant]
     Indication: DRUG USE FOR UNKNOWN INDICATION
     Route: 048
  9. SINGULAIR [Concomitant]
     Indication: DRUG USE FOR UNKNOWN INDICATION
     Route: 048
  10. NEXIUM [Concomitant]
     Indication: DRUG USE FOR UNKNOWN INDICATION
  11. TEMESTA                            /00273201/ [Concomitant]
     Indication: DRUG USE FOR UNKNOWN INDICATION
     Route: 048
  12. SERETIDE [Concomitant]
     Indication: DRUG USE FOR UNKNOWN INDICATION
     Route: 055

REACTIONS (2)
  - DRUG INTERACTION [None]
  - RENAL FAILURE ACUTE [None]
